FAERS Safety Report 5866975-9 (Version None)
Quarter: 2008Q3

REPORT INFORMATION
  Report Type: 
  Country: None (occurrence: None)
  Receive Date: 20080827
  Receipt Date: 20080818
  Transmission Date: 20090109
  Serious: Yes (Life-Threatening, Other)
  Sender: FDA-Public Use
  Company Number: 2005JP002166

PATIENT
  Age: 9 Year
  Sex: Male
  Weight: 54 kg

DRUGS (18)
  1. PROGRAF [Suspect]
     Indication: LIVER TRANSPLANT
     Dosage: ORAL
     Route: 048
     Dates: start: 20040901, end: 20040914
  2. URSO 250 [Concomitant]
  3. LAC B (LACTOBACILLUS BIFIDUS, LYOPHILIZED) [Concomitant]
  4. MIYA-BM (CLOSTRIDIUM BUTYRICUM) [Concomitant]
  5. ENTERONON R (STREPTOCOCCUS FAECALIS, LACTOBACILLUS LACTIS, LACTOBACILL [Concomitant]
  6. MEROPEN (MEROPENEM) INJECTION [Concomitant]
  7. ZOVIRAX [Concomitant]
  8. PRODIF INJECTION [Concomitant]
  9. OMEPRAL INJECTION [Concomitant]
  10. SOLU-MEDROL [Concomitant]
  11. NEUART INJECTION [Concomitant]
  12. VENOGLOBULIN [Concomitant]
  13. DORMICUM /SWE/ (MIDAZOLAM) INJECTION [Concomitant]
  14. PRECEDEX INJECTION [Concomitant]
  15. LASIX /SCH/ (FUROSEMIDE, FUROSEMIDE SODIUM) INJECTION [Concomitant]
  16. PGE INJECTION [Concomitant]
  17. FOY (GABEXATE MESILATE) INJECTION [Concomitant]
  18. ELASPOL (SIVELESTAT) INJECTION [Concomitant]

REACTIONS (2)
  - CONVULSION [None]
  - LEUKOENCEPHALOPATHY [None]
